FAERS Safety Report 19241211 (Version 2)
Quarter: 2024Q1

REPORT INFORMATION
  Report Type: Spontaneous
  Country: JP (occurrence: JP)
  Receive Date: 20210510
  Receipt Date: 20240202
  Transmission Date: 20240410
  Serious: Yes (Other)
  Sender: FDA-Public Use
  Company Number: JP-BAYER-2021-137469

PATIENT
  Sex: Male

DRUGS (4)
  1. XOFIGO [Interacting]
     Active Substance: RADIUM RA-223 DICHLORIDE
     Indication: Hormone-refractory prostate cancer
  2. XOFIGO [Interacting]
     Active Substance: RADIUM RA-223 DICHLORIDE
     Indication: Metastases to bone
  3. ZYTIGA [Interacting]
     Active Substance: ABIRATERONE ACETATE
  4. DENOSUMAB [Concomitant]
     Active Substance: DENOSUMAB

REACTIONS (2)
  - Osteonecrosis of jaw [None]
  - Drug interaction [None]
